FAERS Safety Report 16126290 (Version 1)
Quarter: 2019Q1

REPORT INFORMATION
  Report Type: Spontaneous
  Country: IT (occurrence: IT)
  Receive Date: 20190328
  Receipt Date: 20190328
  Transmission Date: 20190418
  Serious: Yes (Other)
  Sender: FDA-Public Use
  Company Number: IT-TEVA-2019-IT-1030737

PATIENT
  Age: 80 Year
  Sex: Male
  Weight: 75 kg

DRUGS (1)
  1. FINASTERIDE. [Suspect]
     Active Substance: FINASTERIDE
     Indication: PROSTATITIS
     Dosage: 5 MILLIGRAM DAILY;
     Route: 048
     Dates: start: 20190201, end: 20190210

REACTIONS (2)
  - Uterine haemorrhage [Unknown]
  - Pelvic pain [Unknown]
